FAERS Safety Report 5995862-0 (Version None)
Quarter: 2008Q4

REPORT INFORMATION
  Report Type: 
  Country: None (occurrence: None)
  Receive Date: 20081212
  Receipt Date: 20081209
  Transmission Date: 20090506
  Serious: Yes (Death, Hospitalization, Other)
  Sender: FDA-Public Use
  Company Number: GB-ROXANE LABORATORIES, INC.-2008-RO-00378RO

PATIENT
  Age: 77 Year
  Sex: Female

DRUGS (5)
  1. METHOTREXATE [Suspect]
     Indication: RHEUMATOID ARTHRITIS
  2. METHOTREXATE [Suspect]
  3. FOLINIC ACID [Concomitant]
     Indication: SUPPORTIVE CARE
     Route: 042
  4. ANTIMICROBIAL TREATMENT [Concomitant]
     Indication: SUPPORTIVE CARE
  5. MULTI-ORGAN SUPPORT [Concomitant]
     Indication: SUPPORTIVE CARE

REACTIONS (8)
  - BLOOD CREATININE INCREASED [None]
  - BONE MARROW FAILURE [None]
  - DEHYDRATION [None]
  - DIARRHOEA [None]
  - DRUG TOXICITY [None]
  - MALAISE [None]
  - PANCYTOPENIA [None]
  - VOMITING [None]
